FAERS Safety Report 12188381 (Version 2)
Quarter: 2018Q1

REPORT INFORMATION
  Report Type: Report from Study
  Country: GB (occurrence: GB)
  Receive Date: 20160317
  Receipt Date: 20180108
  Transmission Date: 20180508
  Serious: Yes (Death, Hospitalization)
  Sender: FDA-Public Use
  Company Number: PHHO2015GB019290

PATIENT
  Age: 64 Year
  Sex: Male
  Weight: 116.6 kg

DRUGS (21)
  1. ORAMORPH [Concomitant]
     Active Substance: MORPHINE SULFATE
     Indication: PROSTATE CANCER
     Dosage: 5 ML
     Route: 065
     Dates: start: 20150410
  2. DOXAZOSIN [Concomitant]
     Active Substance: DOXAZOSIN\DOXAZOSIN MESYLATE
     Dosage: 2 MG
     Route: 065
     Dates: start: 20131112
  3. ATENOLOL. [Concomitant]
     Active Substance: ATENOLOL
     Indication: HYPERTENSION
     Dosage: 50 MG
     Route: 065
     Dates: start: 1987
  4. ASPIRIN. [Concomitant]
     Active Substance: ASPIRIN
     Indication: CARDIOVASCULAR EVENT PROPHYLAXIS
     Dosage: 75 MG
     Route: 065
     Dates: start: 1989
  5. SILDENAFIL. [Concomitant]
     Active Substance: SILDENAFIL
     Indication: ERECTILE DYSFUNCTION
     Dosage: 100 MG
     Route: 065
     Dates: start: 1986
  6. ZOLADEX [Concomitant]
     Active Substance: GOSERELIN ACETATE
     Indication: IMMUNOSUPPRESSANT DRUG THERAPY
     Route: 065
  7. LIRAGLUTIDE [Concomitant]
     Active Substance: LIRAGLUTIDE
     Indication: TYPE 2 DIABETES MELLITUS
     Dosage: 1.2 MG
     Route: 065
     Dates: start: 20130724, end: 20131107
  8. ACZ885 [Suspect]
     Active Substance: CANAKINUMAB
     Indication: CARDIOVASCULAR EVENT PROPHYLAXIS
     Dosage: 300 MG, QUARTERLY
     Route: 058
     Dates: start: 20131025, end: 20140124
  9. PERINDOPRIL [Concomitant]
     Active Substance: PERINDOPRIL
     Indication: HYPERTENSION
     Dosage: 8 MG
     Route: 065
     Dates: start: 1986
  10. OMEPRAZOLE. [Concomitant]
     Active Substance: OMEPRAZOLE
     Indication: HIATUS HERNIA
     Dosage: 20 MG
     Route: 065
     Dates: start: 20120125
  11. DOXAZOSIN [Concomitant]
     Active Substance: DOXAZOSIN\DOXAZOSIN MESYLATE
     Indication: HYPERTENSION
     Dosage: 1 MG
     Route: 065
     Dates: start: 20130916, end: 20131111
  12. NYSTATIN. [Concomitant]
     Active Substance: NYSTATIN
     Indication: NEUTROPENIC SEPSIS
     Dosage: 1 ML
     Route: 065
     Dates: start: 20150621, end: 20150625
  13. PARACETAMOL [Concomitant]
     Active Substance: ACETAMINOPHEN
     Indication: PROSTATE CANCER
     Dosage: 1 G
     Route: 065
     Dates: start: 20150410
  14. METFORMIN [Concomitant]
     Active Substance: METFORMIN HYDROCHLORIDE
     Indication: TYPE 2 DIABETES MELLITUS
     Dosage: 500 MG
     Route: 065
     Dates: start: 1986
  15. NOVOMIX 30 [Concomitant]
     Active Substance: INSULIN ASPART
     Indication: TYPE 2 DIABETES MELLITUS
     Dosage: 18 IU
     Route: 065
     Dates: start: 20140111
  16. BICALUTAMIDE. [Concomitant]
     Active Substance: BICALUTAMIDE
     Indication: PROSTATE CANCER
     Dosage: 150 MG
     Route: 065
     Dates: start: 20150410
  17. ALPROSTADIL. [Concomitant]
     Active Substance: ALPROSTADIL
     Indication: ERECTILE DYSFUNCTION
     Dosage: 1 DF
     Route: 065
     Dates: start: 20150325
  18. DOCETAXEL. [Concomitant]
     Active Substance: DOCETAXEL
     Indication: IMMUNOSUPPRESSANT DRUG THERAPY
     Route: 065
  19. TRAMADOL. [Concomitant]
     Active Substance: TRAMADOL
     Indication: PROCTALGIA
     Dosage: 30 MG
     Route: 065
     Dates: start: 201401
  20. CIPROFLOXACIN. [Concomitant]
     Active Substance: CIPROFLOXACIN
     Indication: NEUTROPENIC SEPSIS
     Dosage: 500 MG
     Route: 065
     Dates: start: 20150413, end: 20150414
  21. CIPROFLOXACIN. [Concomitant]
     Active Substance: CIPROFLOXACIN
     Dosage: 500 MG
     Route: 065
     Dates: start: 20150621, end: 20150625

REACTIONS (2)
  - Prostate cancer metastatic [Fatal]
  - Pneumonia [Fatal]

NARRATIVE: CASE EVENT DATE: 20150408
